FAERS Safety Report 12050998 (Version 1)
Quarter: 2016Q1

REPORT INFORMATION
  Report Type: Report from Study
  Country: US (occurrence: US)
  Receive Date: 20160208
  Receipt Date: 20160208
  Transmission Date: 20160526
  Serious: No
  Sender: FDA-Public Use
  Company Number: US-ABBVIE-15P-163-1393064-00

PATIENT
  Sex: Female

DRUGS (1)
  1. HUMIRA [Suspect]
     Active Substance: ADALIMUMAB
     Indication: PRODUCT USED FOR UNKNOWN INDICATION
     Route: 065
     Dates: start: 20130927

REACTIONS (4)
  - Gingival bleeding [Recovered/Resolved]
  - Contusion [Recovered/Resolved]
  - Pneumonia [Recovering/Resolving]
  - Allergy to animal [Recovered/Resolved]
